FAERS Safety Report 18195054 (Version 1)
Quarter: 2020Q3

REPORT INFORMATION
  Report Type: Report from Study
  Country: US (occurrence: US)
  Receive Date: 20200825
  Receipt Date: 20200825
  Transmission Date: 20201103
  Serious: Yes (Death, Other)
  Sender: FDA-Public Use
  Company Number: US-CASPER PHARMA LLC-2020CAS000424

PATIENT

DRUGS (2)
  1. RITUXIMAB. [Suspect]
     Active Substance: RITUXIMAB
     Indication: INTERSTITIAL LUNG DISEASE
     Dosage: 375 MILLIGRAM/SQ. METER/INFUSION FOR 4 WEEKS
     Route: 042
  2. AZATHIOPRINE. [Suspect]
     Active Substance: AZATHIOPRINE
     Indication: INTERSTITIAL LUNG DISEASE
     Dosage: 1.0?2.0 MG/KG/DAY
     Route: 065

REACTIONS (4)
  - Nodular regenerative hyperplasia [Unknown]
  - Gastrointestinal disorder [Unknown]
  - Sepsis [Fatal]
  - Product use in unapproved indication [Unknown]
